FAERS Safety Report 5753327-5 (Version None)
Quarter: 2008Q2

REPORT INFORMATION
  Report Type: 
  Country: None (occurrence: None)
  Receive Date: 20080530
  Receipt Date: 20080523
  Transmission Date: 20081010
  Serious: Yes (Hospitalization, Other)
  Sender: FDA-Public Use
  Company Number: HQWYE140510AUG04

PATIENT
  Sex: Female
  Weight: 91.25 kg

DRUGS (1)
  1. PREMPRO [Suspect]
     Dosage: UNKNOWN
     Route: 048
     Dates: start: 19950101, end: 20040701

REACTIONS (1)
  - BREAST CANCER METASTATIC [None]
